FAERS Safety Report 5401190-4 (Version None)
Quarter: 2007Q3

REPORT INFORMATION
  Report Type: 
  Country: None (occurrence: None)
  Receive Date: 20070731
  Receipt Date: 20070718
  Transmission Date: 20080115
  Serious: Yes (Hospitalization)
  Sender: FDA-Public Use
  Company Number: JP-ELI_LILLY_AND_COMPANY-JP200707002787

PATIENT
  Age: 48 Year
  Sex: Female

DRUGS (8)
  1. ZYPREXA [Suspect]
     Indication: SCHIZOPHRENIA
     Dosage: 15 MG, DAILY (1/D)
     Route: 048
  2. ZYPREXA [Suspect]
     Dosage: 315 MG, UNK
     Route: 048
     Dates: start: 20070702, end: 20070702
  3. NITRAZEPAM [Concomitant]
     Dosage: UNK, EACH EVENING
     Route: 048
  4. NITRAZEPAM [Concomitant]
     Dosage: 21 DAYS OF PRESCRIBED DAILY DOSAGE
     Route: 048
     Dates: start: 20070702, end: 20070702
  5. PURSENNID [Concomitant]
     Dosage: UNK, UNK
     Route: 048
  6. PURSENNID [Concomitant]
     Dosage: 21 DAYS OF PRESCRIBED DAILY DOSAGE
     Route: 048
     Dates: start: 20070702, end: 20070702
  7. ANTIPSYCHOTICS [Concomitant]
  8. ANTIPSYCHOTICS [Concomitant]
     Dosage: 21 DAYS OF PRESCRIBED DAILY DOSAGE
     Route: 048
     Dates: start: 20070702, end: 20070702

REACTIONS (5)
  - COMA [None]
  - HYPOGLYCAEMIA [None]
  - MULTIPLE DRUG OVERDOSE INTENTIONAL [None]
  - PNEUMONIA [None]
  - SUICIDE ATTEMPT [None]
